FAERS Safety Report 26005494 (Version 1)
Quarter: 2025Q4

REPORT INFORMATION
  Report Type: Spontaneous
  Country: EU (occurrence: EU)
  Receive Date: 20251106
  Receipt Date: 20251106
  Transmission Date: 20260117
  Serious: Yes (Death, Hospitalization, Other)
  Sender: VIIV
  Company Number: None

PATIENT
  Age: 48 Year
  Sex: Male

DRUGS (15)
  1. DOLUTEGRAVIR [Suspect]
     Active Substance: DOLUTEGRAVIR
     Indication: Antiretroviral therapy
     Dosage: UNK
     Route: 065
  2. FLUCONAZOLE [Suspect]
     Active Substance: FLUCONAZOLE
     Indication: Product used for unknown indication
     Dosage: 200 MG
  3. AMOXICILLIN [Suspect]
     Active Substance: AMOXICILLIN
     Indication: Pneumonia
     Dosage: UNK
     Route: 065
  4. TEICOPLANIN [Suspect]
     Active Substance: TEICOPLANIN
     Indication: Product used for unknown indication
     Dosage: UNK
     Route: 065
  5. EMTRICITABINE [Suspect]
     Active Substance: EMTRICITABINE
     Indication: Antiretroviral therapy
     Dosage: UNK
     Route: 065
  6. LEVOFLOXACIN [Suspect]
     Active Substance: LEVOFLOXACIN
     Indication: Pneumonia
     Dosage: UNK
     Route: 065
  7. DEXAMETHASONE [Suspect]
     Active Substance: DEXAMETHASONE
     Indication: Product used for unknown indication
     Dosage: 20 MG, QD
  8. LINEZOLID [Suspect]
     Active Substance: LINEZOLID
     Indication: Pneumonia bacterial
     Dosage: 1200 MG, QD (600 MG, 2X PER DAY)
  9. VANCOMYCIN [Suspect]
     Active Substance: VANCOMYCIN
     Indication: Product used for unknown indication
     Dosage: 1 G
  10. MEROPENEM [Suspect]
     Active Substance: MEROPENEM
     Indication: Pneumonia bacterial
     Dosage: 3 G, QD (1 G, 3X PER DAY)
  11. VORICONAZOLE [Suspect]
     Active Substance: VORICONAZOLE
     Indication: Product used for unknown indication
     Dosage: UNK
  12. CITALOPRAM [Suspect]
     Active Substance: CITALOPRAM
     Indication: Affective disorder
     Dosage: UNK
     Route: 065
  13. PENTACARINAT [Suspect]
     Active Substance: PENTAMIDINE ISETHIONATE
     Indication: Product used for unknown indication
     Dosage: UNK
     Route: 065
  14. BISEPTOL [Suspect]
     Active Substance: SULFAMETHOXAZOLE\TRIMETHOPRIM
     Indication: Pneumonia pneumococcal
     Dosage: 12 DF, QD (12 DF, PER DAY, AMPOULES)
  15. NEUPOGEN [Suspect]
     Active Substance: FILGRASTIM
     Indication: Product used for unknown indication
     Dosage: UNK
     Route: 065

REACTIONS (7)
  - Pancytopenia [Fatal]
  - Respiratory failure [Fatal]
  - Condition aggravated [Fatal]
  - Dyspnoea [Fatal]
  - Diarrhoea [Unknown]
  - Rash [Unknown]
  - Hypotonia [Unknown]
